FAERS Safety Report 9507179 (Version 1)
Quarter: 2013Q3

REPORT INFORMATION
  Report Type: Spontaneous
  Country: US (occurrence: US)
  Receive Date: 20130909
  Receipt Date: 20130909
  Transmission Date: 20140515
  Serious: Yes (Death, Other)
  Sender: FDA-Public Use
  Company Number: US-TEVA-430323USA

PATIENT
  Age: 55 Year
  Sex: Female

DRUGS (1)
  1. HYDROXYCHLOROQUINE [Suspect]
     Dosage: 400 MILLIGRAM DAILY;
     Route: 065

REACTIONS (19)
  - Cardiomyopathy [Fatal]
  - Microangiopathy [Fatal]
  - Splenic infarction [Fatal]
  - Endocarditis [Fatal]
  - Hepatic failure [Unknown]
  - Chronic hepatic failure [Unknown]
  - Pleural effusion [Unknown]
  - Ascites [Unknown]
  - Autoimmune hepatitis [Unknown]
  - Portal hypertension [Unknown]
  - Varices oesophageal [Unknown]
  - Splenomegaly [Unknown]
  - Liver disorder [Unknown]
  - Atelectasis [Unknown]
  - Renal failure [Unknown]
  - Ejection fraction decreased [Unknown]
  - Ventricular hypertrophy [Unknown]
  - Enterococcal infection [Unknown]
  - Coronary artery disease [Unknown]
